FAERS Safety Report 5028024-4 (Version None)
Quarter: 2006Q2

REPORT INFORMATION
  Report Type: 
  Country: None (occurrence: None)
  Receive Date: 20060609
  Receipt Date: 20060531
  Transmission Date: 20061013
  Serious: Yes (Other)
  Sender: FDA-Public Use
  Company Number: 2006070801

PATIENT
  Age: 66 Year
  Sex: Female
  Weight: 65.7716 kg

DRUGS (1)
  1. NEURONTIN [Suspect]
     Indication: INSOMNIA
     Dosage: 100 MG (100 MG, 1 IN 1D), ORAL
     Route: 048
     Dates: start: 20050901, end: 20051001

REACTIONS (12)
  - ALOPECIA [None]
  - DARK CIRCLES UNDER EYES [None]
  - DEPRESSION [None]
  - DIPLOPIA [None]
  - FLUID RETENTION [None]
  - FOOD CRAVING [None]
  - LOSS OF CONSCIOUSNESS [None]
  - PHARYNGOLARYNGEAL PAIN [None]
  - PROCTALGIA [None]
  - RECTAL HAEMORRHAGE [None]
  - TRANSIENT ISCHAEMIC ATTACK [None]
  - VISION BLURRED [None]
